FAERS Safety Report 21698624 (Version 1)
Quarter: 2022Q4

REPORT INFORMATION
  Report Type: Spontaneous
  Country: US (occurrence: None)
  Receive Date: 20221208
  Receipt Date: 20221208
  Transmission Date: 20230113
  Serious: No
  Sender: FDA-Public Use
  Company Number: US-Orion Corporation ORION PHARMA-ENTC2022-0172

PATIENT
  Age: 79 Year
  Sex: Female

DRUGS (1)
  1. STALEVO [Suspect]
     Active Substance: CARBIDOPA\ENTACAPONE\LEVODOPA
     Indication: Product used for unknown indication
     Dosage: STRENGTH: 125/31.25/200 MG; AT LEAST SIX TIMES A DAY
     Route: 065

REACTIONS (4)
  - Therapeutic product effect delayed [Unknown]
  - Therapeutic response shortened [Unknown]
  - Product complaint [Unknown]
  - Product label issue [Unknown]
